FAERS Safety Report 5406629-6 (Version None)
Quarter: 2007Q3

REPORT INFORMATION
  Report Type: 
  Country: None (occurrence: None)
  Receive Date: 20070806
  Receipt Date: 20070726
  Transmission Date: 20080115
  Serious: Yes (Hospitalization)
  Sender: FDA-Public Use
  Company Number: US-PFIZER INC-2007062318

PATIENT
  Age: 71 Year
  Sex: Female

DRUGS (4)
  1. SILDENAFIL (PAH) [Suspect]
     Indication: PULMONARY HYPERTENSION
  2. BOSENTAN [Suspect]
     Indication: PULMONARY HYPERTENSION
  3. OXYGEN [Concomitant]
  4. ANTICOAGULANTS [Concomitant]

REACTIONS (1)
  - CARDIAC FAILURE [None]
